FAERS Safety Report 4561552-4 (Version None)
Quarter: 2005Q1

REPORT INFORMATION
  Report Type: 
  Country: None (occurrence: None)
  Receive Date: 20050121
  Receipt Date: 20050105
  Transmission Date: 20050727
  Serious: Yes (Other)
  Sender: FDA-Public Use
  Company Number: USA050187479

PATIENT
  Age: 66 Year
  Sex: Female

DRUGS (1)
  1. EVISTA [Suspect]
     Indication: OSTEOPOROSIS
     Dates: start: 20010101, end: 20040101

REACTIONS (1)
  - TRANSIENT ISCHAEMIC ATTACK [None]
